FAERS Safety Report 7102853-5 (Version None)
Quarter: 2010Q4

REPORT INFORMATION
  Report Type: 
  Country: None (occurrence: None)
  Receive Date: 20101115
  Receipt Date: 20101104
  Transmission Date: 20110411
  Serious: Yes (Other)
  Sender: FDA-Public Use
  Company Number: CN-JNJFOC-20101102425

PATIENT
  Age: 40 Year
  Sex: Female

DRUGS (2)
  1. DAKTARIN [Suspect]
     Indication: TINEA PEDIS
     Dosage: 15G, QUANTITY SUFFICIENT, TWICE A DAY, AD.US.EXT
     Route: 061
  2. DAKTARIN [Suspect]
     Route: 061

REACTIONS (3)
  - APPLICATION SITE PAIN [None]
  - APPLICATION SITE SWELLING [None]
  - PRODUCT COUNTERFEIT [None]
